FAERS Safety Report 12407962 (Version 1)
Quarter: 2016Q2

REPORT INFORMATION
  Report Type: Spontaneous
  Country: US (occurrence: US)
  Receive Date: 20160526
  Receipt Date: 20160526
  Transmission Date: 20160815
  Serious: No
  Sender: FDA-Public Use
  Company Number: US-BAYER-2016-084887

PATIENT
  Age: 50 Year
  Sex: Male

DRUGS (7)
  1. TMP-SMX [Concomitant]
     Active Substance: SULFAMETHOXAZOLE\TRIMETHOPRIM
     Dosage: 5 MG/KG, TID
     Route: 041
  2. DEXAMETHASONE. [Concomitant]
     Active Substance: DEXAMETHASONE
     Dosage: 6 MG, QID
     Route: 041
  3. IMIPENEM [Concomitant]
     Active Substance: IMIPENEM
     Dosage: 500 MG, TID
     Route: 041
  4. DEXAMETHASONE. [Concomitant]
     Active Substance: DEXAMETHASONE
     Dosage: 6 MG, QID
     Route: 048
  5. MOXIFLOXACIN ORAL [Suspect]
     Active Substance: MOXIFLOXACIN
     Dosage: 400 MG, QD
     Route: 048
  6. IMIPENEM [Concomitant]
     Active Substance: IMIPENEM
     Dosage: 1 G, TID
  7. TMP-SMX [Concomitant]
     Active Substance: SULFAMETHOXAZOLE\TRIMETHOPRIM
     Dosage: 320 MG/1600 MG, TID
     Route: 048

REACTIONS (1)
  - Off label use [None]
